FAERS Safety Report 14425851 (Version 5)
Quarter: 2018Q2

REPORT INFORMATION
  Report Type: Report from Study
  Country: RU (occurrence: RU)
  Receive Date: 20180123
  Receipt Date: 20180508
  Transmission Date: 20180711
  Serious: Yes (Life-Threatening, Hospitalization)
  Sender: FDA-Public Use
  Company Number: RU-PFIZER INC-2017485435

PATIENT
  Age: 69 Year
  Sex: Male
  Weight: 88 kg

DRUGS (3)
  1. AMLODIPINE [Concomitant]
     Active Substance: AMLODIPINE BESYLATE
     Indication: HYPERTENSION
     Dosage: 5 MG, ONCE DAILY CONTINUOUS
     Route: 048
     Dates: start: 201509, end: 20171117
  2. BOSUTINIB [Suspect]
     Active Substance: BOSUTINIB
     Indication: CHRONIC MYELOID LEUKAEMIA
     Dosage: 500 MG, ONCE DAILY CONTINUOUS
     Route: 048
     Dates: start: 20090227, end: 20171116
  3. BISOPROLOL [Concomitant]
     Active Substance: BISOPROLOL
     Indication: HYPERTENSION
     Dosage: 5 MG, ONCE DAILY CONTINIOUS
     Route: 048
     Dates: start: 201509, end: 20171117

REACTIONS (2)
  - Pericardial effusion [Recovered/Resolved]
  - Ascites [Recovered/Resolved]

NARRATIVE: CASE EVENT DATE: 20171011
